FAERS Safety Report 8480483-0 (Version None)
Quarter: 2012Q3

REPORT INFORMATION
  Report Type: 
  Country: None (occurrence: None)
  Receive Date: 20120702
  Receipt Date: 20080114
  Transmission Date: 20120928
  Serious: No
  Sender: FDA-Public Use
  Company Number: US-BIOGENIDEC-2008BI001311

PATIENT
  Sex: Female

DRUGS (5)
  1. PEPCID [Concomitant]
     Indication: PREMEDICATION
  2. PEPCID [Concomitant]
     Indication: THERAPEUTIC PROCEDURE
  3. BENADRYL [Concomitant]
     Indication: THERAPEUTIC PROCEDURE
  4. TYSABRI [Suspect]
     Indication: MULTIPLE SCLEROSIS
     Route: 042
     Dates: start: 20071114
  5. BENADRYL [Concomitant]
     Indication: PREMEDICATION

REACTIONS (11)
  - MEMORY IMPAIRMENT [None]
  - RASH GENERALISED [None]
  - RASH [None]
  - ORAL SURGERY [None]
  - MUSCLE SPASMS [None]
  - FATIGUE [None]
  - PAIN [None]
  - NASOPHARYNGITIS [None]
  - URINARY TRACT INFECTION [None]
  - PANIC ATTACK [None]
  - URTICARIA [None]
